FAERS Safety Report 7208830-8 (Version None)
Quarter: 2011Q1

REPORT INFORMATION
  Report Type: 
  Country: None (occurrence: None)
  Receive Date: 20110104
  Receipt Date: 20101227
  Transmission Date: 20110831
  Serious: Yes (Other)
  Sender: FDA-Public Use
  Company Number: CN-JNJFOC-20101208688

PATIENT
  Age: 64 Year
  Sex: Female

DRUGS (2)
  1. DAKTARIN [Suspect]
     Route: 061
  2. DAKTARIN [Suspect]
     Indication: TINEA PEDIS
     Route: 061

REACTIONS (3)
  - SKIN SWELLING [None]
  - PYREXIA [None]
  - GENERALISED ERYTHEMA [None]
